FAERS Safety Report 7237465-6 (Version None)
Quarter: 2011Q1

REPORT INFORMATION
  Report Type: 
  Country: None (occurrence: None)
  Receive Date: 20110118
  Receipt Date: 20110103
  Transmission Date: 20110831
  Serious: Yes (Death, Hospitalization)
  Sender: FDA-Public Use
  Company Number: KV200900716

PATIENT
  Age: 48 Year
  Sex: Female
  Weight: 63.5 kg

DRUGS (15)
  1. MORPHINE SULFATE [Suspect]
     Indication: BACK PAIN
     Dosage: 15 MG, TID, ORAL
     Route: 048
     Dates: start: 20080411, end: 20081026
  2. SEROQUEL [Concomitant]
  3. TRAZODONE (TRAZODONE) [Concomitant]
  4. METHADONE (METHADONE) [Concomitant]
  5. ROPINIROLE [Concomitant]
  6. OMEPRAZOLE [Concomitant]
  7. CLINDAMYCIN [Concomitant]
  8. AMITRIPTYLINE HYDROCHLORIDE [Concomitant]
  9. NEURONTIN [Concomitant]
  10. HYDROCODONE W/APAP (HYDROCODONE, PARACETAMOL) [Concomitant]
  11. FENTANYL [Concomitant]
  12. ALPRAZOLAM [Concomitant]
  13. CYCLOBENZAPARINE (CYCLOBENZAPRINE) [Concomitant]
  14. NORTRIPTYLINE HCL [Concomitant]
  15. MORPHINE SULFATE INJ [Concomitant]

REACTIONS (11)
  - PULMONARY CONGESTION [None]
  - PULMONARY OEDEMA [None]
  - GROIN PAIN [None]
  - CONVULSION [None]
  - CARDIOMEGALY [None]
  - NEPHROSCLEROSIS [None]
  - FALL [None]
  - ARTERIOSCLEROSIS CORONARY ARTERY [None]
  - UNRESPONSIVE TO STIMULI [None]
  - BACK PAIN [None]
  - TOXICITY TO VARIOUS AGENTS [None]
